FAERS Safety Report 17697830 (Version 2)
Quarter: 2020Q2

REPORT INFORMATION
  Report Type: Report from Study
  Country: IN (occurrence: IN)
  Receive Date: 20200423
  Receipt Date: 20200519
  Transmission Date: 20200714
  Serious: Yes (Other)
  Sender: FDA-Public Use
  Company Number: NVSC2020IN036207

PATIENT
  Age: 51 Year
  Sex: Male
  Weight: 95 kg

DRUGS (1)
  1. GALVUS MET [Suspect]
     Active Substance: METFORMIN HYDROCHLORIDE\VILDAGLIPTIN
     Indication: DIABETES MELLITUS
     Dosage: 1 DF (50/500), QD
     Route: 048

REACTIONS (16)
  - Pain in extremity [Unknown]
  - Red blood cell sedimentation rate increased [Unknown]
  - Hyperhidrosis [Not Recovered/Not Resolved]
  - Mean cell volume decreased [Unknown]
  - Hypertension [Unknown]
  - High density lipoprotein decreased [Unknown]
  - Sleep disorder [Unknown]
  - Obesity [Unknown]
  - Blood glucose increased [Not Recovered/Not Resolved]
  - Body mass index increased [Unknown]
  - Haemoglobin abnormal [Unknown]
  - Blood creatinine abnormal [Unknown]
  - Blood iron decreased [Unknown]
  - Hyperglycaemia [Unknown]
  - Glycosylated haemoglobin increased [Unknown]
  - Eosinophil count increased [Unknown]

NARRATIVE: CASE EVENT DATE: 202001
